FAERS Safety Report 16311404 (Version 2)
Quarter: 2019Q2

REPORT INFORMATION
  Report Type: Spontaneous
  Country: RO (occurrence: RO)
  Receive Date: 20190514
  Receipt Date: 20190524
  Transmission Date: 20190711
  Serious: Yes (Life-Threatening)
  Sender: FDA-Public Use
  Company Number: RO-GE HEALTHCARE LIFE SCIENCES-2019CSU002429

PATIENT

DRUGS (2)
  1. OMNIPAQUE [Suspect]
     Active Substance: IOHEXOL
     Indication: COMPUTERISED TOMOGRAM THORAX
     Dosage: 95 ML, SINGLE
     Route: 042
     Dates: start: 20190502, end: 20190502
  2. OMNIPAQUE [Suspect]
     Active Substance: IOHEXOL
     Indication: BREAST NEOPLASM

REACTIONS (2)
  - Rash maculo-papular [Recovered/Resolved]
  - Dysphonia [Recovered/Resolved]

NARRATIVE: CASE EVENT DATE: 20190502
